FAERS Safety Report 7221062-2 (Version None)
Quarter: 2011Q1

REPORT INFORMATION
  Report Type: 
  Country: None (occurrence: None)
  Receive Date: 20110112
  Receipt Date: 20110107
  Transmission Date: 20110831
  Serious: No
  Sender: FDA-Public Use
  Company Number: US-PFIZER INC-2011005583

PATIENT
  Age: 74 Year
  Sex: Male

DRUGS (2)
  1. ZITHROMAX [Suspect]
     Indication: OROPHARYNGEAL PAIN
  2. ZITHROMAX [Suspect]
     Indication: NASAL CONGESTION

REACTIONS (1)
  - DRUG INEFFECTIVE [None]
